FAERS Safety Report 20689870 (Version 7)
Quarter: 2022Q4

REPORT INFORMATION
  Report Type: Spontaneous
  Country: US (occurrence: US)
  Receive Date: 20220408
  Receipt Date: 20221114
  Transmission Date: 20230113
  Serious: No
  Sender: FDA-Public Use
  Company Number: US-VERTEX PHARMACEUTICALS-2022-004799

PATIENT
  Age: 8 Year
  Sex: Female
  Weight: 31 kg

DRUGS (16)
  1. TRIKAFTA [Suspect]
     Active Substance: ELEXACAFTOR\IVACAFTOR\TEZACAFTOR
     Indication: Cystic fibrosis
     Dosage: 2 TABS (50MG ELEXACAFTOR/25MG TEZACAFTOR/37.5MG IVACAFTOR) AM; 1 TAB (75MG IVACAFTOR) PM
     Route: 048
     Dates: start: 20210825, end: 202203
  2. TRIKAFTA [Suspect]
     Active Substance: ELEXACAFTOR\IVACAFTOR\TEZACAFTOR
     Dosage: 1 ORANGE TAB (50MG ELEXACAFTOR/25MG TEZACAFTOR/37.5MG IVACAFTOR) AM; 1 BLUE TAB (75 MG IVACAFTOR) PM
     Route: 048
  3. TRIKAFTA [Suspect]
     Active Substance: ELEXACAFTOR\IVACAFTOR\TEZACAFTOR
     Dosage: TWO ORANGE TABLETS AM AND ONE BLUE TABLET PM
     Route: 048
     Dates: end: 2022
  4. TRIKAFTA [Suspect]
     Active Substance: ELEXACAFTOR\IVACAFTOR\TEZACAFTOR
     Dosage: DECREASED STRENGTH TO HALF
     Route: 048
     Dates: start: 20221003, end: 20221101
  5. ACETYLCYSTEINE [Concomitant]
     Active Substance: ACETYLCYSTEINE
     Dosage: 10 % SOLUTION
  6. ALBUTEROL SULFATE [Concomitant]
     Active Substance: ALBUTEROL SULFATE
     Dosage: 2.5 MG/3 ML VIAL
     Route: 055
  7. SODIUM CHLORIDE [Concomitant]
     Active Substance: SODIUM CHLORIDE
     Dosage: 7 % NEB
  8. PULMOZYME [Concomitant]
     Active Substance: DORNASE ALFA
     Dosage: UNK
  9. VITAMIN B12 [Concomitant]
     Active Substance: CYANOCOBALAMIN
     Dosage: 3000/ML
  10. VITAMIN C [Concomitant]
     Active Substance: ASCORBIC ACID
     Dosage: 500 MG
  11. ZENPEP [Concomitant]
     Active Substance: PANCRELIPASE AMYLASE\PANCRELIPASE LIPASE\PANCRELIPASE PROTEASE
     Dosage: 10000 UNIT/ 10-32-42 K CAPSULE DR
  12. ZENPEP [Concomitant]
     Active Substance: PANCRELIPASE AMYLASE\PANCRELIPASE LIPASE\PANCRELIPASE PROTEASE
     Dosage: 10-32-42K CAPSULE DR
  13. ALBUTEROL [Concomitant]
     Active Substance: ALBUTEROL
  14. SODIUM CHLORIDE [Concomitant]
     Active Substance: SODIUM CHLORIDE
  15. POLYETHYLENE GLYCOL 3350 [Concomitant]
     Active Substance: POLYETHYLENE GLYCOL 3350
  16. SODIUM BICARBONATE [Concomitant]
     Active Substance: SODIUM BICARBONATE

REACTIONS (18)
  - Depression [Recovered/Resolved]
  - Fear [Recovered/Resolved]
  - Paranoia [Recovered/Resolved]
  - Motion sickness [Recovered/Resolved]
  - Feeling abnormal [Unknown]
  - Depressed mood [Recovered/Resolved]
  - Oropharyngeal pain [Unknown]
  - Pain in jaw [Unknown]
  - Mental disorder [Recovering/Resolving]
  - Vomiting [Recovered/Resolved]
  - Muscle spasms [Not Recovered/Not Resolved]
  - Myalgia [Not Recovered/Not Resolved]
  - Anxiety [Unknown]
  - Nausea [Recovered/Resolved]
  - Arthralgia [Not Recovered/Not Resolved]
  - Headache [Not Recovered/Not Resolved]
  - Abdominal pain upper [Not Recovered/Not Resolved]
  - Upper respiratory tract infection [Not Recovered/Not Resolved]

NARRATIVE: CASE EVENT DATE: 20220201
